FAERS Safety Report 10884880 (Version 2)
Quarter: 2015Q2

REPORT INFORMATION
  Report Type: Spontaneous
  Country: US (occurrence: US)
  Receive Date: 20150304
  Receipt Date: 20150409
  Transmission Date: 20150821
  Serious: No
  Sender: FDA-Public Use
  Company Number: US-AMGEN-USASP2015019444

PATIENT
  Age: 57 Year
  Sex: Female

DRUGS (1)
  1. ENBREL [Suspect]
     Active Substance: ETANERCEPT
     Indication: RHEUMATOID ARTHRITIS
     Dosage: 25 MG, 2 TIMES/WK
     Route: 065
     Dates: start: 20000901

REACTIONS (11)
  - Cough [Recovered/Resolved]
  - Paranasal sinus discomfort [Recovered/Resolved]
  - Gingival disorder [Recovered/Resolved]
  - Bronchitis [Recovered/Resolved]
  - Throat irritation [Recovered/Resolved]
  - Sinusitis [Recovered/Resolved]
  - Aphonia [Not Recovered/Not Resolved]
  - Pyrexia [Recovered/Resolved]
  - Chest discomfort [Recovered/Resolved]
  - Nasal congestion [Recovered/Resolved]
  - Laryngitis [Not Recovered/Not Resolved]

NARRATIVE: CASE EVENT DATE: 201501
